FAERS Safety Report 9383429 (Version 1)
Quarter: 2013Q3

REPORT INFORMATION
  Report Type: Spontaneous
  Country: FR (occurrence: FR)
  Receive Date: 20130704
  Receipt Date: 20130704
  Transmission Date: 20140515
  Serious: Yes (Hospitalization)
  Sender: FDA-Public Use
  Company Number: FR-PFIZER INC-2013195595

PATIENT
  Age: 64 Year
  Sex: Male

DRUGS (1)
  1. EUPANTOL [Suspect]
     Dosage: 20 MG DAILY
     Route: 048
     Dates: end: 20130207

REACTIONS (2)
  - Malabsorption [Unknown]
  - Pancytopenia [Unknown]
